FAERS Safety Report 21217127 (Version 1)
Quarter: 2022Q3

REPORT INFORMATION
  Report Type: Other
  Country: ES (occurrence: ES)
  Receive Date: 20220816
  Receipt Date: 20220816
  Transmission Date: 20221027
  Serious: Yes (Other)
  Sender: FDA-Public Use
  Company Number: ES-CELLTRION HEALTHCARE HUNGARY KFT-2022ES012388

PATIENT
  Age: 89 Year
  Sex: Male

DRUGS (4)
  1. RITUXIMAB [Suspect]
     Active Substance: RITUXIMAB
     Indication: Pemphigoid
     Dosage: CONCENTRATE FOR SOLUTION FOR INFUSION, SINGLE CYCLE OF TWO INFUSIONS OF RITUXIMAB 500 MG WAS ADMINIS
     Route: 041
  2. ACETAMINOPHEN [Concomitant]
     Active Substance: ACETAMINOPHEN
     Indication: Premedication
     Dosage: 1 GRAM, DAY OF THE INFUSION AND THE DAY AFTER
  3. DEXCHLORPHENIRAMINE [Concomitant]
     Active Substance: DEXCHLORPHENIRAMINE
     Indication: Premedication
     Dosage: 5 MILLIGRAM, DAY OF THE INFUSION AND THE DAY AFTER
  4. METHYLPREDNISOLONE [Concomitant]
     Active Substance: METHYLPREDNISOLONE
     Indication: Premedication
     Dosage: 125 MILLIGRAM, DAY OF THE INFUSION AND THE DAY AFTER

REACTIONS (2)
  - Pemphigoid [Unknown]
  - Off label use [Unknown]
